FAERS Safety Report 6768787-0 (Version None)
Quarter: 2010Q2

REPORT INFORMATION
  Report Type: 
  Country: None (occurrence: None)
  Receive Date: 20100611
  Receipt Date: 20100603
  Transmission Date: 20101027
  Serious: Yes (Life-Threatening, Hospitalization)
  Sender: FDA-Public Use
  Company Number: A0803387A

PATIENT
  Age: 72 Year
  Sex: Male
  Weight: 95.3007 kg

DRUGS (6)
  1. CAFFEINE CITRATE [Suspect]
     Indication: SUPPLEMENTATION THERAPY
     Dosage: 1000 MG/ ORAL
     Route: 048
     Dates: start: 20080101, end: 20090401
  2. CELECOXIB [Suspect]
     Indication: OSTEOARTHRITIS
     Dosage: 200 MG/ PER DAY/ ORAL
     Route: 048
     Dates: start: 20090120, end: 20090417
  3. ATORVASTATIN CALCIUM [Concomitant]
  4. CYCLOBENZAPRINE HCL [Concomitant]
  5. NAPROXEN [Concomitant]
  6. CENTRUM [Concomitant]

REACTIONS (7)
  - APPARENT LIFE THREATENING EVENT [None]
  - CEREBRAL DISORDER [None]
  - CEREBRAL INFARCTION [None]
  - CEREBROVASCULAR ACCIDENT [None]
  - DEPRESSION [None]
  - HEMIPARESIS [None]
  - LEFT VENTRICULAR HYPERTROPHY [None]
